FAERS Safety Report 4633215-8 (Version None)
Quarter: 2005Q2

REPORT INFORMATION
  Report Type: 
  Country: None (occurrence: None)
  Receive Date: 20050408
  Receipt Date: 20050325
  Transmission Date: 20051028
  Serious: Yes (Hospitalization)
  Sender: FDA-Public Use
  Company Number: DSA_26207_2005

PATIENT
  Age: 47 Year
  Sex: Female

DRUGS (5)
  1. TILDIEM [Suspect]
     Indication: HYPERTENSION
     Dosage: PO
     Route: 048
     Dates: start: 20050124, end: 20050204
  2. DECONTRACTYL [Suspect]
     Indication: HYPERTENSION
     Dosage: PO
     Route: 048
     Dates: start: 20050117, end: 20050204
  3. XANAX [Concomitant]
  4. CLARITYNE [Concomitant]
  5. SPASMINE JOLLY [Concomitant]

REACTIONS (2)
  - RASH MACULO-PAPULAR [None]
  - TOXIC SKIN ERUPTION [None]
